FAERS Safety Report 4897327-6 (Version None)
Quarter: 2005Q4

REPORT INFORMATION
  Report Type: 
  Country: None (occurrence: None)
  Receive Date: 20051223
  Receipt Date: 20050902
  Transmission Date: 20060501
  Serious: No
  Sender: FDA-Public Use
  Company Number: 05P-163-0310178-00

PATIENT
  Age: 67 Year
  Sex: Female
  Weight: 75.2971 kg

DRUGS (11)
  1. HUMIRA [Suspect]
     Indication: RHEUMATOID ARTHRITIS
     Dosage: 40 MG, 1 IN 2 WK, SUBCUTANEOUS
     Route: 058
     Dates: start: 20050214
  2. PREDNISONE [Concomitant]
  3. PANTOPRAZOLE [Concomitant]
  4. ATENOLOL [Concomitant]
  5. TOLTERODINE TARTRATE [Concomitant]
  6. CRESTOR [Concomitant]
  7. FLUCONAZOLE [Concomitant]
  8. GLYCOLAX [Concomitant]
  9. MULTIVITAMIN [Concomitant]
  10. AMLODIPINE BESYLATE [Concomitant]
  11. ................ [Concomitant]

REACTIONS (3)
  - DIZZINESS [None]
  - HYPOTENSION [None]
  - NAUSEA [None]
